FAERS Safety Report 7949114-X (Version None)
Quarter: 2011Q4

REPORT INFORMATION
  Report Type: 
  Country: None (occurrence: None)
  Receive Date: 20111123
  Receipt Date: 20111115
  Transmission Date: 20120403
  Serious: Yes (Hospitalization)
  Sender: FDA-Public Use
  Company Number: AUR-APL-2011-05584

PATIENT
  Age: 89 Year
  Sex: Male

DRUGS (10)
  1. SOLIFENACIN SUCCINATE [Concomitant]
  2. METOPROLOL TARTRATE [Concomitant]
  3. SODIUM BICARBONATE IN PLASTIC CONTAINER [Concomitant]
  4. DONEPEZIL HCL [Concomitant]
  5. LISINOPRIL [Concomitant]
  6. VALACYCLOVIR [Suspect]
     Indication: HERPES ZOSTER OPHTHALMIC
     Dosage: 3 GM (1 GM, 3 IN 1 D), ORAL
     Route: 048
  7. OMEPRAZOLE [Concomitant]
  8. LEVOTHYROXINE SODIUM [Concomitant]
  9. FLUOXETINE HYDROCHLORIDE [Concomitant]
  10. SIMVASTATIN [Concomitant]

REACTIONS (16)
  - ANAPHYLACTIC REACTION [None]
  - BLOOD PRESSURE INCREASED [None]
  - EYE SWELLING [None]
  - AGITATION [None]
  - CONFUSIONAL STATE [None]
  - DRUG INTOLERANCE [None]
  - RASH ERYTHEMATOUS [None]
  - RHONCHI [None]
  - BLOOD SODIUM DECREASED [None]
  - NEUROTOXICITY [None]
  - VISION BLURRED [None]
  - EXFOLIATIVE RASH [None]
  - BLISTER [None]
  - PERIORBITAL OEDEMA [None]
  - MENTAL STATUS CHANGES [None]
  - HALLUCINATION, VISUAL [None]
